FAERS Safety Report 8381814-2 (Version None)
Quarter: 2012Q2

REPORT INFORMATION
  Report Type: 
  Country: None (occurrence: None)
  Receive Date: 20120522
  Receipt Date: 20120507
  Transmission Date: 20120825
  Serious: Yes (Other)
  Sender: FDA-Public Use
  Company Number: JPI-P-020610

PATIENT
  Age: 53 Year
  Sex: Male
  Weight: 102.0593 kg

DRUGS (21)
  1. XYREM [Suspect]
     Indication: CATAPLEXY
     Dosage: 4.5 GM (2.25 GM, 2 IN 1 D), ORAL
     Route: 048
     Dates: start: 20120323, end: 20120406
  2. NITROSTAT [Concomitant]
  3. AMLODIPINE BESYLATE [Concomitant]
  4. DEPAKOTE [Concomitant]
  5. PAXIL [Concomitant]
  6. VENTOLIN HFA (ALBUTEROL) [Concomitant]
  7. PRILOSEC [Concomitant]
  8. FIBER [Concomitant]
  9. ACETAMINOPHEN [Concomitant]
  10. BUDESONIDE AND FORMOTEROL [Concomitant]
  11. CLONAZEPAM [Suspect]
     Indication: PRODUCT USED FOR UNKNOWN INDICATION
  12. METOPROLOL TARTRATE [Concomitant]
  13. SYNTHROID [Concomitant]
  14. AXIRON (TESTOSTERONE) [Concomitant]
  15. PROVIGIL [Concomitant]
  16. TRAVATAN Z [Concomitant]
  17. COLACE (DOCUSATE) [Concomitant]
  18. IRON [Concomitant]
  19. LISINOPRIL [Concomitant]
  20. LISINOPRIL AND HYDROCHLOROTHIAZIDE [Concomitant]
  21. ZOCOR [Concomitant]

REACTIONS (4)
  - HYPOTHYROIDISM [None]
  - DYSPNOEA [None]
  - THYROID CANCER [None]
  - HEART RATE INCREASED [None]
